FAERS Safety Report 9954705 (Version 2)
Quarter: 2014Q1

REPORT INFORMATION
  Report Type: Report from Study
  Country: US (occurrence: US)
  Receive Date: 20140304
  Receipt Date: 20140304
  Transmission Date: 20141002
  Serious: No
  Sender: FDA-Public Use
  Company Number: US-ABBVIE-13P-163-1070389-00

PATIENT
  Age: 50 Year
  Sex: Female
  Weight: 90.8 kg

DRUGS (11)
  1. HUMIRA [Suspect]
     Indication: RHEUMATOID ARTHRITIS
     Dates: start: 201206
  2. HUMIRA [Suspect]
     Route: 058
     Dates: start: 20130411
  3. LEFLUNOMIDE [Concomitant]
     Indication: RHEUMATOID ARTHRITIS
  4. BESYLATE [Concomitant]
     Indication: HYPERTENSION
  5. ZOLOFT [Concomitant]
     Indication: PAIN
  6. ADVIL [Concomitant]
     Indication: PAIN
  7. AMIODARONE [Concomitant]
     Indication: BLOOD PRESSURE
  8. ZOLOFT [Concomitant]
     Indication: DEPRESSION
  9. ZOLOFT [Concomitant]
     Indication: STRESS
  10. AMLODIPINE [Concomitant]
     Indication: HYPERTENSION
  11. ALEVE [Concomitant]
     Indication: PAIN
     Dosage: ONE PILL IN THE AM AND ONE PILL IN THE PM

REACTIONS (18)
  - Device malfunction [Not Recovered/Not Resolved]
  - Incorrect dose administered [Not Recovered/Not Resolved]
  - Rheumatoid arthritis [Not Recovered/Not Resolved]
  - Injection site papule [Unknown]
  - Injection site pain [Not Recovered/Not Resolved]
  - Injection site haemorrhage [Not Recovered/Not Resolved]
  - Bronchitis [Recovered/Resolved]
  - Drug effect decreased [Not Recovered/Not Resolved]
  - Local swelling [Not Recovered/Not Resolved]
  - Pain in extremity [Not Recovered/Not Resolved]
  - Pain in jaw [Not Recovered/Not Resolved]
  - Trismus [Not Recovered/Not Resolved]
  - Weight decreased [Not Recovered/Not Resolved]
  - Congenital joint malformation [Unknown]
  - Joint swelling [Unknown]
  - Pain in extremity [Unknown]
  - Local swelling [Unknown]
  - Bronchitis [Unknown]
